FAERS Safety Report 20020645 (Version 2)
Quarter: 2021Q4

REPORT INFORMATION
  Report Type: Spontaneous
  Country: JP (occurrence: JP)
  Receive Date: 20211101
  Receipt Date: 20211201
  Transmission Date: 20220303
  Serious: Yes (Other)
  Sender: FDA-Public Use
  Company Number: JP-NOVARTISPH-NVSJ2021JP017745

PATIENT
  Sex: Male

DRUGS (3)
  1. ZOLEDRONIC ACID [Suspect]
     Active Substance: ZOLEDRONIC ACID
     Indication: Oesophageal carcinoma
     Dosage: UNK, QMO
     Route: 042
  2. ZOLEDRONIC ACID [Suspect]
     Active Substance: ZOLEDRONIC ACID
     Indication: Metastases to spine
  3. DICLOFENAC [Concomitant]
     Active Substance: DICLOFENAC
     Indication: Spinal pain
     Dosage: 50 MG, BID
     Route: 054

REACTIONS (2)
  - Osteonecrosis of jaw [Unknown]
  - Pain in jaw [Recovering/Resolving]
